FAERS Safety Report 7562507-8 (Version None)
Quarter: 2011Q2

REPORT INFORMATION
  Report Type: 
  Country: None (occurrence: None)
  Receive Date: 20110621
  Receipt Date: 20110621
  Transmission Date: 20111010
  Serious: No
  Sender: FDA-Public Use
  Company Number: None

PATIENT
  Age: 34 Year
  Sex: Female
  Weight: 74.8435 kg

DRUGS (1)
  1. ZYRTEC [Suspect]
     Dosage: 1 DAILE PO
     Route: 048
     Dates: start: 20110417, end: 20110617

REACTIONS (4)
  - PRURITUS GENERALISED [None]
  - DRUG DOSE OMISSION [None]
  - NIGHTMARE [None]
  - IRRITABILITY [None]
